FAERS Safety Report 17183501 (Version 1)
Quarter: 2019Q4

REPORT INFORMATION
  Report Type: Spontaneous
  Country: FR (occurrence: FR)
  Receive Date: 20191220
  Receipt Date: 20191220
  Transmission Date: 20200122
  Serious: Yes (Other)
  Sender: FDA-Public Use
  Company Number: FR-TEVA-2019-FR-1153863

PATIENT
  Age: 39 Year
  Sex: Male

DRUGS (4)
  1. GEMCITABINE. [Suspect]
     Active Substance: GEMCITABINE
     Indication: LYMPHOMA
     Route: 041
     Dates: start: 20190802, end: 20190802
  2. OXALIPLATIN. [Suspect]
     Active Substance: OXALIPLATIN
     Indication: LYMPHOMA
     Dosage: 130 MG/M2
     Route: 041
     Dates: start: 20190802, end: 20190802
  3. KIDROLASE [Suspect]
     Active Substance: ASPARAGINASE
     Indication: LYMPHOMA
     Dosage: 5000 IU
     Route: 041
     Dates: start: 20190801, end: 20190801
  4. METHOTREXATE. [Suspect]
     Active Substance: METHOTREXATE
     Indication: LYMPHOMA
     Dosage: 4.8 GRAM
     Route: 041
     Dates: start: 20190801, end: 20190801

REACTIONS (1)
  - Hepatocellular injury [Recovered/Resolved]

NARRATIVE: CASE EVENT DATE: 20190803
